FAERS Safety Report 9332819 (Version 1)
Quarter: 2013Q2

REPORT INFORMATION
  Report Type: Spontaneous
  Country: US (occurrence: US)
  Receive Date: 20130606
  Receipt Date: 20130606
  Transmission Date: 20140414
  Serious: Yes (Other)
  Sender: FDA-Public Use
  Company Number: US-BRISTOL-MYERS SQUIBB COMPANY-18972869

PATIENT
  Age: 14 Year
  Sex: Male
  Weight: 56.69 kg

DRUGS (5)
  1. ABILIFY [Suspect]
     Indication: BIPOLAR DISORDER
     Dosage: AFTER 1 YEAR DOSE INCREASED TO 4MG?DURATION :2YEAR.?PREVIOUSLY TOOK 2 MG
  2. ABILIFY [Suspect]
     Indication: AGITATION
     Dosage: AFTER 1 YEAR DOSE INCREASED TO 4MG?DURATION :2YEAR.?PREVIOUSLY TOOK 2 MG
  3. STRATTERA [Concomitant]
  4. LAMICTAL [Concomitant]
     Indication: CONVULSION
     Dosage: STOPPED 3 MONTHS AGO.
  5. LAMICTAL [Concomitant]
     Indication: EPILEPSY
     Dosage: STOPPED 3 MONTHS AGO.

REACTIONS (2)
  - Mania [Unknown]
  - Memory impairment [Unknown]
